FAERS Safety Report 21189297 (Version 4)
Quarter: 2022Q4

REPORT INFORMATION
  Report Type: Report from Study
  Country: IT (occurrence: IT)
  Receive Date: 20220809
  Receipt Date: 20221208
  Transmission Date: 20230112
  Serious: No
  Sender: FDA-Public Use
  Company Number: IT-UCBSA-2022001712

PATIENT
  Age: 73 Year
  Sex: Female

DRUGS (4)
  1. ROTIGOTINE [Suspect]
     Active Substance: ROTIGOTINE
     Indication: Product used for unknown indication
     Dosage: 2MG PER DAY
     Route: 062
  2. ROTIGOTINE [Suspect]
     Active Substance: ROTIGOTINE
     Dosage: 2 NEUPRO 2 MG PATCHES PUT SIMULTANEOUSLY
     Route: 062
  3. SINEMET [Concomitant]
     Active Substance: CARBIDOPA\LEVODOPA
     Indication: Product used for unknown indication
     Dosage: 100 MILLIGRAM, 3X/DAY (TID)
  4. SINEMET [Concomitant]
     Active Substance: CARBIDOPA\LEVODOPA
     Dosage: 150 MILLIGRAM, 3X/DAY (TID)

REACTIONS (9)
  - Balance disorder [Recovering/Resolving]
  - Coordination abnormal [Recovering/Resolving]
  - Disturbance in attention [Recovering/Resolving]
  - Erythema [Unknown]
  - Application site pain [Unknown]
  - Product adhesion issue [Unknown]
  - Off label use [Unknown]
  - Drug intolerance [Unknown]
  - Movement disorder [Unknown]
